FAERS Safety Report 6052933-0 (Version None)
Quarter: 2009Q1

REPORT INFORMATION
  Report Type: 
  Country: None (occurrence: None)
  Receive Date: 20090127
  Receipt Date: 20090116
  Transmission Date: 20090719
  Serious: Yes (Other)
  Sender: FDA-Public Use
  Company Number: US-NOVOPROD-283296

PATIENT
  Age: 16 Year
  Sex: Male

DRUGS (1)
  1. NORDITROPIN NORDIFLEX [Suspect]
     Indication: GROWTH HORMONE DEFICIENCY
     Dosage: UNKNOWN
     Route: 058
     Dates: end: 20080206

REACTIONS (1)
  - THYROID NEOPLASM [None]
